FAERS Safety Report 6219101-0 (Version None)
Quarter: 2009Q2

REPORT INFORMATION
  Report Type: 
  Country: None (occurrence: None)
  Receive Date: 20090605
  Receipt Date: 20090529
  Transmission Date: 20091009
  Serious: Yes (Death, Hospitalization, Other)
  Sender: FDA-Public Use
  Company Number: 2009006035

PATIENT
  Sex: Male

DRUGS (1)
  1. TRISENOX [Suspect]
     Indication: MYELODYSPLASTIC SYNDROME
     Dosage: INTRAVENOUS
     Route: 042
     Dates: end: 20040730

REACTIONS (10)
  - ATRIAL FIBRILLATION [None]
  - ATRIOVENTRICULAR BLOCK FIRST DEGREE [None]
  - CARDIAC FAILURE CONGESTIVE [None]
  - DISEASE PROGRESSION [None]
  - ELECTROCARDIOGRAM QT PROLONGED [None]
  - HYPOXIA [None]
  - LYMPHOPENIA [None]
  - MYELODYSPLASTIC SYNDROME [None]
  - OEDEMA [None]
  - PYREXIA [None]
